FAERS Safety Report 7145087-0 (Version None)
Quarter: 2010Q4

REPORT INFORMATION
  Report Type: 
  Country: None (occurrence: None)
  Receive Date: 20101208
  Receipt Date: 20101201
  Transmission Date: 20110411
  Serious: Yes (Death)
  Sender: FDA-Public Use
  Company Number: PHHY2010DK81629

PATIENT
  Sex: Male
  Weight: 87 kg

DRUGS (3)
  1. RITALIN [Suspect]
     Indication: ATTENTION DEFICIT/HYPERACTIVITY DISORDER
     Dosage: 7 DF, QD
     Route: 048
     Dates: start: 19980227, end: 20101013
  2. BUDESONIDE [Concomitant]
     Indication: ASTHMA
     Dosage: 400 MICROGRAM(S)/DOSE
     Route: 055
     Dates: start: 20090615, end: 20101013
  3. SALBUTAMOL [Concomitant]
     Indication: ASTHMA

REACTIONS (4)
  - ANOXIA [None]
  - INTRACRANIAL PRESSURE INCREASED [None]
  - VENTRICULAR FIBRILLATION [None]
  - WOLFF-PARKINSON-WHITE SYNDROME [None]
